FAERS Safety Report 5984219-4 (Version None)
Quarter: 2008Q4

REPORT INFORMATION
  Report Type: 
  Country: None (occurrence: None)
  Receive Date: 20081208
  Receipt Date: 20081001
  Transmission Date: 20090506
  Serious: Yes (Hospitalization)
  Sender: FDA-Public Use
  Company Number: US-AMGEN-QUU304760

PATIENT
  Sex: Male
  Weight: 56.3 kg

DRUGS (11)
  1. ENBREL [Suspect]
     Indication: ANKYLOSING SPONDYLITIS
     Dates: start: 20061127, end: 20080701
  2. ENBREL [Suspect]
  3. INDOMETHACIN [Concomitant]
  4. RANITIDINE [Concomitant]
  5. RANITIDINE [Concomitant]
     Dates: start: 20070715
  6. ENALAPRIL MALEATE [Concomitant]
  7. ALTACE [Concomitant]
  8. FLAX SEED OIL [Concomitant]
  9. AMLODIPINE [Concomitant]
  10. KEPPRA [Concomitant]
  11. ATIVAN [Concomitant]

REACTIONS (5)
  - AORTIC VALVE INCOMPETENCE [None]
  - CONVULSION [None]
  - HYPERTENSION [None]
  - MITRAL VALVE INCOMPETENCE [None]
  - MITRAL VALVE STENOSIS [None]
